FAERS Safety Report 8273991-9 (Version None)
Quarter: 2012Q2

REPORT INFORMATION
  Report Type: 
  Country: None (occurrence: None)
  Receive Date: 20120411
  Receipt Date: 20120403
  Transmission Date: 20120825
  Serious: Yes (Hospitalization, Other)
  Sender: FDA-Public Use
  Company Number: US-JNJFOC-20120212182

PATIENT
  Sex: Female
  Weight: 98.6 kg

DRUGS (9)
  1. ANALGESIC UNSPECIFIED [Concomitant]
     Indication: PAIN
  2. ATENOLOL [Concomitant]
  3. TRAMADOL HCL [Concomitant]
  4. XARELTO [Suspect]
     Indication: THROMBOSIS PROPHYLAXIS
     Route: 048
     Dates: start: 20120125
  5. ANTIHYPERTENSIVE AGENT [Concomitant]
     Indication: BLOOD PRESSURE
  6. XARELTO [Suspect]
     Indication: KNEE ARTHROPLASTY
     Route: 048
     Dates: start: 20120125
  7. SIMVASTATIN [Concomitant]
  8. CALCIUM CARBONATE [Concomitant]
  9. COLACE [Concomitant]

REACTIONS (1)
  - HAEMORRHAGIC STROKE [None]
